FAERS Safety Report 5195507-6 (Version None)
Quarter: 2007Q1

REPORT INFORMATION
  Report Type: 
  Country: None (occurrence: None)
  Receive Date: 20070102
  Receipt Date: 20061220
  Transmission Date: 20070707
  Serious: Yes (Hospitalization, Other)
  Sender: FDA-Public Use
  Company Number: PHBS2004JP09202

PATIENT
  Age: 25 Year
  Sex: Male
  Weight: 30 kg

DRUGS (12)
  1. SIMULECT [Suspect]
     Indication: RENAL TRANSPLANT
     Dosage: 20 MG, ONCE/SINGLE
     Dates: start: 20040629, end: 20040629
  2. SIMULECT [Suspect]
     Dosage: 20 MG, ONCE/SINGLE
     Dates: start: 20040703, end: 20040703
  3. PROGRAF [Suspect]
     Indication: RENAL TRANSPLANT
     Dosage: 0.9 MG/D
     Dates: start: 20040629
  4. CELLCEPT [Concomitant]
     Indication: RENAL TRANSPLANT
     Dosage: 1000 MG/D
     Route: 048
     Dates: start: 20040629
  5. NEORAL [Suspect]
     Indication: RENAL TRANSPLANT
     Dosage: 250 MG/D (8MG/KGX2)
     Route: 048
     Dates: start: 20040626, end: 20040628
  6. PREDONINE [Concomitant]
     Dosage: 5 MG/D
     Route: 048
     Dates: start: 20030612, end: 20040628
  7. CALCIUM CARBONATE [Concomitant]
     Route: 048
     Dates: start: 20030305, end: 20040628
  8. RENAGEL [Concomitant]
     Dosage: 750 MG/D
     Route: 048
     Dates: start: 20040526, end: 20040628
  9. MIYA-BM [Concomitant]
     Dosage: 3 G/D
     Route: 048
     Dates: start: 20040622, end: 20040628
  10. BENAMBAX [Concomitant]
     Dosage: 30 MG/D
     Dates: start: 20040625, end: 20040628
  11. EPOGEN [Concomitant]
     Route: 042
     Dates: start: 20040628, end: 20040628
  12. FESIN [Concomitant]
     Dosage: 40 MG/D
     Route: 042
     Dates: start: 20040626, end: 20040628

REACTIONS (15)
  - BODY TEMPERATURE INCREASED [None]
  - CHILLS [None]
  - CONVULSION [None]
  - DISEASE PROGRESSION [None]
  - DYSTONIA [None]
  - EYE MOVEMENT DISORDER [None]
  - GAZE PALSY [None]
  - HEART RATE INCREASED [None]
  - HYPERTENSION [None]
  - LEUKOENCEPHALOPATHY [None]
  - LOSS OF CONSCIOUSNESS [None]
  - MUSCLE SPASMS [None]
  - NEUROTOXICITY [None]
  - OXYGEN SATURATION DECREASED [None]
  - TREMOR [None]
